FAERS Safety Report 6888412-8 (Version None)
Quarter: 2010Q3

REPORT INFORMATION
  Report Type: 
  Country: None (occurrence: None)
  Receive Date: 20100730
  Receipt Date: 20100719
  Transmission Date: 20110219
  Serious: Yes (Other)
  Sender: FDA-Public Use
  Company Number: US-ELI_LILLY_AND_COMPANY-US201007005547

PATIENT
  Sex: Female

DRUGS (5)
  1. FORTEO [Suspect]
     Indication: OSTEOPOROSIS
     Dosage: 20 UG, DAILY (1/D)
  2. SYMBICORT [Concomitant]
  3. ANTIHYPERTENSIVES [Concomitant]
  4. HYDROCODONE BITARTRATE [Concomitant]
  5. MECLIZINE [Concomitant]
     Dosage: 25 MG, UNKNOWN

REACTIONS (8)
  - BLOOD PRESSURE INCREASED [None]
  - CERUMEN IMPACTION [None]
  - COLD SWEAT [None]
  - DIZZINESS [None]
  - FEELING ABNORMAL [None]
  - NAUSEA [None]
  - VERTEBROPLASTY [None]
  - VOMITING [None]
